FAERS Safety Report 22122975 (Version 2)
Quarter: 2023Q1

REPORT INFORMATION
  Report Type: Spontaneous
  Country: US (occurrence: US)
  Receive Date: 20230322
  Receipt Date: 20230330
  Transmission Date: 20230417
  Serious: No
  Sender: FDA-Public Use
  Company Number: US-LEO Pharma-350361

PATIENT
  Age: 22 Year
  Sex: Male

DRUGS (2)
  1. ADBRY [Suspect]
     Active Substance: TRALOKINUMAB-LDRM
     Indication: Eczema
     Dosage: ADBRY PFS 150MG/ML INJECT 600MG
     Dates: start: 20230308
  2. ADBRY [Suspect]
     Active Substance: TRALOKINUMAB-LDRM
     Indication: Eczema
     Dosage: ADBRY PFS 150MG/ML INJECT 600MG
     Dates: start: 20230308

REACTIONS (4)
  - Swelling of eyelid [Unknown]
  - Conjunctivitis [Recovering/Resolving]
  - Ocular hyperaemia [Unknown]
  - Erythema of eyelid [Unknown]

NARRATIVE: CASE EVENT DATE: 20230314
